FAERS Safety Report 18826381 (Version 1)
Quarter: 2021Q1

REPORT INFORMATION
  Report Type: Spontaneous
  Country: JP (occurrence: JP)
  Receive Date: 20210202
  Receipt Date: 20210202
  Transmission Date: 20210419
  Serious: Yes (Hospitalization)
  Sender: FDA-Public Use
  Company Number: JP-TEVA-2021-JP-1874875

PATIENT
  Age: 35 Year
  Sex: Male

DRUGS (2)
  1. HYDROCORTISONE. [Suspect]
     Active Substance: HYDROCORTISONE
     Indication: ADRENAL INSUFFICIENCY
     Dosage: 100 MILLIGRAM DAILY;
     Route: 041
     Dates: start: 201312
  2. HYDROCORTISONE. [Suspect]
     Active Substance: HYDROCORTISONE
     Indication: ADRENOCORTICOTROPIC HORMONE DEFICIENCY
     Dosage: 15 MILLIGRAM DAILY;
     Route: 065

REACTIONS (4)
  - Rebound effect [Recovered/Resolved]
  - Familial mediterranean fever [Recovered/Resolved]
  - Adrenal insufficiency [Recovered/Resolved]
  - Treatment noncompliance [Unknown]
